FAERS Safety Report 7960786-6 (Version None)
Quarter: 2011Q4

REPORT INFORMATION
  Report Type: 
  Country: None (occurrence: None)
  Receive Date: 20111207
  Receipt Date: 20111128
  Transmission Date: 20120403
  Serious: Yes (Hospitalization)
  Sender: FDA-Public Use
  Company Number: US-BIOGENIDEC-2011BI043405

PATIENT
  Age: 23 Year
  Sex: Female

DRUGS (1)
  1. TYSABRI [Suspect]
     Indication: MULTIPLE SCLEROSIS
     Route: 042
     Dates: start: 20110103, end: 20110818

REACTIONS (5)
  - OEDEMA PERIPHERAL [None]
  - INCOHERENT [None]
  - MENTAL DISORDER [None]
  - URINARY TRACT INFECTION [None]
  - VOMITING [None]
